FAERS Safety Report 5206932-9 (Version None)
Quarter: 2007Q1

REPORT INFORMATION
  Report Type: 
  Country: None (occurrence: None)
  Receive Date: 20070105
  Receipt Date: 20070105
  Transmission Date: 20070707
  Serious: Yes (Hospitalization)
  Sender: FDA-Public Use
  Company Number: None

PATIENT
  Age: 58 Year
  Sex: Male

DRUGS (1)
  1. PHENOBARBITAL TAB [Suspect]
     Indication: CONVULSION
     Dosage: 10MG TID

REACTIONS (3)
  - ALCOHOL POISONING [None]
  - DRUG TOXICITY [None]
  - ENCEPHALOPATHY [None]
